FAERS Safety Report 10119793 (Version 1)
Quarter: 2014Q2

REPORT INFORMATION
  Report Type: Spontaneous
  Country: US (occurrence: US)
  Receive Date: 20140425
  Receipt Date: 20140425
  Transmission Date: 20141212
  Serious: No
  Sender: FDA-Public Use
  Company Number: US-PFIZER INC-2014112808

PATIENT
  Age: 89 Year
  Sex: Male
  Weight: 85.26 kg

DRUGS (1)
  1. TOVIAZ [Suspect]
     Indication: BLADDER DISORDER
     Dosage: 4 MG, DAILY

REACTIONS (1)
  - Blood pressure increased [Recovered/Resolved]
